FAERS Safety Report 5321073-8 (Version None)
Quarter: 2007Q2

REPORT INFORMATION
  Report Type: 
  Country: None (occurrence: None)
  Receive Date: 20070504
  Receipt Date: 20070426
  Transmission Date: 20071010
  Serious: Yes (Hospitalization)
  Sender: FDA-Public Use
  Company Number: 232072K07USA

PATIENT
  Age: 48 Year
  Sex: Female
  Weight: 63.5036 kg

DRUGS (22)
  1. REBIF [Suspect]
     Indication: MULTIPLE SCLEROSIS
     Dosage: 44 MCG, 3 IN 1 WEEKS, SUBCUTANEOUS
     Route: 058
     Dates: start: 20060915
  2. MOBIC [Concomitant]
  3. REGLAN [Concomitant]
  4. SINGULAIR (MONTELUKAST/01362601/) [Concomitant]
  5. AZATHIOPRINE [Concomitant]
  6. TEGRETOL [Concomitant]
  7. TOPAMAX [Concomitant]
  8. BACLOFEN [Concomitant]
  9. VISTARIL (HYDROXYZINE HYDROCHLORIDE) [Concomitant]
  10. CARAFATE [Concomitant]
  11. VITAMIN D [Concomitant]
  12. CALCIUM (CALCIUM - SANDOZ  /00009901/) [Concomitant]
  13. NEXIUM [Concomitant]
  14. DOLOBID [Concomitant]
  15. VICODIN ES [Concomitant]
  16. LIDODERM (LIDOCAINE /00033401/) [Concomitant]
  17. LORAZEPAM [Concomitant]
  18. CLARINEX (NARINE) [Concomitant]
  19. MIACALCIN [Concomitant]
  20. COMBIVENT (BREVA) [Concomitant]
  21. WELLBUTRIN SR [Concomitant]
  22. APHERESIS WITH 70 PERCENT EXCHANGE (ALL OTHER THERAPEUTIC PRODUCTS) [Concomitant]

REACTIONS (2)
  - BITE [None]
  - CELLULITIS [None]
